FAERS Safety Report 14518318 (Version 1)
Quarter: 2018Q1

REPORT INFORMATION
  Report Type: Spontaneous
  Country: ES (occurrence: ES)
  Receive Date: 20180212
  Receipt Date: 20180212
  Transmission Date: 20180509
  Serious: Yes (Other)
  Sender: FDA-Public Use
  Company Number: ES-IPSEN BIOPHARMACEUTICALS, INC.-2018-02202

PATIENT
  Age: 53 Year
  Sex: Female
  Weight: 57 kg

DRUGS (12)
  1. ZALTRAP [Suspect]
     Active Substance: ZIV-AFLIBERCEPT
     Indication: COLORECTAL CANCER METASTATIC
     Route: 041
     Dates: start: 20150331, end: 20150331
  2. LEUCOVORIN. [Suspect]
     Active Substance: LEUCOVORIN
     Indication: COLORECTAL CANCER METASTATIC
     Route: 041
     Dates: start: 20150414, end: 20150414
  3. LIPOSOMAL IRINOTECAN [Suspect]
     Active Substance: IRINOTECAN HYDROCHLORIDE
     Indication: OFF LABEL USE
     Dosage: NOT REPORTED
     Route: 041
     Dates: start: 20150331, end: 20150331
  4. 5-FU [Suspect]
     Active Substance: FLUOROURACIL
     Route: 041
     Dates: start: 20150414, end: 20150414
  5. 5-FU [Suspect]
     Active Substance: FLUOROURACIL
     Route: 040
     Dates: start: 20150331, end: 20150331
  6. LIPOSOMAL IRINOTECAN [Suspect]
     Active Substance: IRINOTECAN HYDROCHLORIDE
     Indication: COLORECTAL CANCER METASTATIC
     Dosage: 304.2000122 MG
     Route: 041
     Dates: start: 20150414, end: 20150414
  7. 5-FU [Suspect]
     Active Substance: FLUOROURACIL
     Indication: COLORECTAL CANCER METASTATIC
     Route: 040
     Dates: start: 20150414, end: 20150414
  8. ENALAPRIL [Concomitant]
     Active Substance: ENALAPRIL
     Dates: start: 20150415
  9. ZALTRAP [Suspect]
     Active Substance: ZIV-AFLIBERCEPT
     Route: 041
     Dates: start: 20150414, end: 20150414
  10. 5-FU [Suspect]
     Active Substance: FLUOROURACIL
     Route: 041
     Dates: start: 20150331, end: 20150331
  11. LEUCOVORIN. [Suspect]
     Active Substance: LEUCOVORIN
     Route: 041
     Dates: start: 20150331, end: 20150331
  12. PRIMPERAN [Concomitant]
     Active Substance: METOCLOPRAMIDE HYDROCHLORIDE
     Dates: start: 20150416

REACTIONS (6)
  - Off label use [Unknown]
  - Herpes ophthalmic [Recovered/Resolved]
  - Epistaxis [Recovered/Resolved]
  - Dysphonia [Recovered/Resolved]
  - Rectal haemorrhage [Not Recovered/Not Resolved]
  - Hypertension [Recovered/Resolved]

NARRATIVE: CASE EVENT DATE: 20150417
